FAERS Safety Report 8815273 (Version 1)
Quarter: 2012Q4

REPORT INFORMATION
  Report Type: 
  Country: ES (occurrence: ES)
  Receive Date: 20120928
  Receipt Date: 20120928
  Transmission Date: 20130627
  Serious: Yes (Other)
  Sender: FDA-Public Use
  Company Number: ES-ROXANE LABORATORIES, INC.-2012-RO-01913RO

PATIENT
  Age: 3 Year
  Sex: Female

DRUGS (5)
  1. PREDNISONE [Suspect]
     Indication: NEPHROTIC SYNDROME
  2. CYCLOPHOSPHAMIDE TABLETS USP [Suspect]
     Indication: NEPHROTIC SYNDROME
  3. CALCITRIOL [Suspect]
     Indication: NEPHROTIC SYNDROME
  4. ENALAPRIL [Suspect]
     Indication: NEPHROTIC SYNDROME
     Dosage: 10 mg
  5. CYCLOSPORINE [Suspect]
     Indication: NEPHROTIC SYNDROME

REACTIONS (7)
  - Upper respiratory tract infection [Recovered/Resolved]
  - Drug ineffective [Recovered/Resolved]
  - Influenza [Recovered/Resolved]
  - Cushingoid [Recovered/Resolved]
  - Hypertrichosis [Recovered/Resolved]
  - Obesity [Recovered/Resolved]
  - Skin striae [Recovered/Resolved]
